FAERS Safety Report 18340434 (Version 2)
Quarter: 2020Q4

REPORT INFORMATION
  Report Type: Spontaneous
  Country: CA (occurrence: CA)
  Receive Date: 20201002
  Receipt Date: 20201112
  Transmission Date: 20210113
  Serious: Yes (Other)
  Sender: FDA-Public Use
  Company Number: CA-PFIZER INC-2020370867

PATIENT
  Age: 73 Year
  Sex: Male

DRUGS (6)
  1. RABEPRAZOLE [Concomitant]
     Active Substance: RABEPRAZOLE
     Dosage: 20 MG, 1X/DAY
     Route: 048
  2. RUXIENCE [Suspect]
     Active Substance: RITUXIMAB-PVVR
     Indication: MICROSCOPIC POLYANGIITIS
     Dosage: 1000 MG, CYCLIC (AT WEEK 0 AND WEEK 2 EVERY 6 MONTHS)
     Route: 042
  3. RUXIENCE [Suspect]
     Active Substance: RITUXIMAB-PVVR
     Indication: GRANULOMATOSIS WITH POLYANGIITIS
     Dosage: 1000 MG, CYCLIC (AT WEEK 0 AND WEEK 2 EVERY 6 MONTHS)
     Route: 042
     Dates: end: 201912
  4. XARELTO [Concomitant]
     Active Substance: RIVAROXABAN
     Dosage: 50 MG, 1X/DAY
  5. BECLOMETHASONE [Concomitant]
     Active Substance: BECLOMETHASONE
     Dosage: UNK
     Route: 055
  6. CYCLOPHOSPHAMIDE. [Concomitant]
     Active Substance: CYCLOPHOSPHAMIDE
     Dosage: UNK

REACTIONS (13)
  - Off label use [Unknown]
  - Fibrosis [Unknown]
  - Lung opacity [Unknown]
  - Lymphoproliferative disorder [Unknown]
  - Condition aggravated [Unknown]
  - Respiratory tract infection [Unknown]
  - Product use issue [Unknown]
  - Lymphadenopathy mediastinal [Unknown]
  - Pruritus [Unknown]
  - Loss of personal independence in daily activities [Not Recovered/Not Resolved]
  - Interstitial lung disease [Unknown]
  - Haemoglobin urine present [Unknown]
  - Myalgia [Unknown]

NARRATIVE: CASE EVENT DATE: 201807
